FAERS Safety Report 9402861 (Version 1)
Quarter: 2013Q3

REPORT INFORMATION
  Report Type: Spontaneous
  Country: US (occurrence: US)
  Receive Date: 20130716
  Receipt Date: 20130716
  Transmission Date: 20140515
  Serious: No
  Sender: FDA-Public Use
  Company Number: US-009507513-1306USA012745

PATIENT
  Sex: 0

DRUGS (1)
  1. MAXALT [Suspect]
     Indication: MIGRAINE
     Dosage: UNKNOWN
     Route: 048

REACTIONS (3)
  - Headache [Unknown]
  - Product outer packaging issue [Unknown]
  - Product formulation issue [Unknown]
